FAERS Safety Report 8333676-7 (Version None)
Quarter: 2012Q1

REPORT INFORMATION
  Report Type: 
  Country: None (occurrence: None)
  Receive Date: 20120329
  Receipt Date: 20100712
  Transmission Date: 20120608
  Serious: Yes (Disabling)
  Sender: FDA-Public Use
  Company Number: PHHY2010US43480

PATIENT
  Age: 71 Year
  Sex: Female

DRUGS (11)
  1. LOVAZA [Concomitant]
  2. VITAMIN B COMPLEX CAP [Concomitant]
  3. ESTRADIOL [Concomitant]
  4. MILK THISTLE [Concomitant]
  5. ACIDOPHILUS (LACTOBACILLUS ACIDOPHILUS) [Concomitant]
  6. LAMISIL [Suspect]
     Indication: ONYCHOMYCOSIS
     Dosage: 1 DF, QD, ORAL
     Route: 048
     Dates: start: 20100506, end: 20100618
  7. RHODIOLA [Concomitant]
  8. GARLIC (ALLIUM SATIVUM) [Concomitant]
  9. ANTIBIOTICS [Concomitant]
  10. AMITRIPTYLINE HCL [Concomitant]
  11. SIMVASTATIN [Concomitant]

REACTIONS (1)
  - AGEUSIA [None]
